FAERS Safety Report 8740554 (Version 2)
Quarter: 2013Q4

REPORT INFORMATION
  Report Type: Spontaneous
  Country: US (occurrence: US)
  Receive Date: 20120823
  Receipt Date: 20131101
  Transmission Date: 20140711
  Serious: No
  Sender: FDA-Public Use
  Company Number: US-009507513-1208USA007011

PATIENT
  Sex: Male

DRUGS (5)
  1. PEGINTRON [Suspect]
     Indication: HEPATITIS C
     Dosage: UNK
     Dates: start: 2012
  2. LISINOPRIL [Concomitant]
  3. SEROQUEL [Concomitant]
  4. TRAZODONE HYDROCHLORIDE [Concomitant]
  5. CLONAZEPAM [Concomitant]

REACTIONS (1)
  - Injection site erythema [Not Recovered/Not Resolved]
